FAERS Safety Report 20645522 (Version 1)
Quarter: 2022Q1

REPORT INFORMATION
  Report Type: Spontaneous
  Country: IT (occurrence: IT)
  Receive Date: 20220328
  Receipt Date: 20220328
  Transmission Date: 20220424
  Serious: Yes (Other)
  Sender: FDA-Public Use
  Company Number: IT-009507513-2203ITA008288

PATIENT
  Age: 64 Year
  Sex: Male

DRUGS (3)
  1. PEMBROLIZUMAB [Suspect]
     Active Substance: PEMBROLIZUMAB
     Indication: Tonsil cancer
     Dosage: 200 MILLIGRAM, Q3W
     Dates: start: 202107, end: 2021
  2. CARBOPLATIN [Suspect]
     Active Substance: CARBOPLATIN
     Indication: Tonsil cancer
     Dosage: AUC 5 (400 MG)
     Dates: start: 202107, end: 202107
  3. FLUOROURACIL [Suspect]
     Active Substance: FLUOROURACIL
     Indication: Tonsil cancer
     Dosage: 1000 MG/M3 CONTINUOUS INFUSION FOR 96 H
     Route: 041
     Dates: start: 202107, end: 202107

REACTIONS (3)
  - Haematotoxicity [Recovered/Resolved]
  - Lung neoplasm malignant [Unknown]
  - Platelet count abnormal [Recovered/Resolved]

NARRATIVE: CASE EVENT DATE: 20210701
